FAERS Safety Report 5969389-6 (Version None)
Quarter: 2008Q4

REPORT INFORMATION
  Report Type: 
  Country: None (occurrence: None)
  Receive Date: 20081126
  Receipt Date: 20081119
  Transmission Date: 20090506
  Serious: Yes (Life-Threatening)
  Sender: FDA-Public Use
  Company Number: FI-JNJFOC-20081104718

PATIENT
  Age: 13 Year
  Sex: Female

DRUGS (8)
  1. REMICADE [Suspect]
     Route: 042
  2. REMICADE [Suspect]
     Route: 042
  3. REMICADE [Suspect]
     Indication: CROHN'S DISEASE
     Route: 042
  4. PENTASA [Concomitant]
     Indication: CROHN'S DISEASE
     Route: 048
  5. METRONIDAZOLE HCL [Concomitant]
     Indication: CROHN'S DISEASE
     Route: 048
  6. SOLU-MEDROL [Concomitant]
     Indication: PREMEDICATION
  7. CETIRIZIN [Concomitant]
     Indication: PREMEDICATION
  8. PARACETAMOL [Concomitant]
     Indication: PREMEDICATION

REACTIONS (6)
  - ABDOMINAL PAIN [None]
  - DYSPNOEA [None]
  - ERYTHEMA [None]
  - INFUSION RELATED REACTION [None]
  - LIP SWELLING [None]
  - PHARYNGEAL OEDEMA [None]
